FAERS Safety Report 8444034-9 (Version None)
Quarter: 2012Q2

REPORT INFORMATION
  Report Type: 
  Country: None (occurrence: None)
  Receive Date: 20120618
  Receipt Date: 20120612
  Transmission Date: 20120825
  Serious: Yes (Death, Hospitalization)
  Sender: FDA-Public Use
  Company Number: PHHY2012EC050852

PATIENT
  Sex: Male

DRUGS (2)
  1. EXELON [Suspect]
     Indication: DEMENTIA ALZHEIMER'S TYPE
     Dosage: 3 MG, QD
     Route: 048
     Dates: start: 20090101, end: 20120420
  2. RASILEZ HCT [Suspect]
     Dosage: 1 DF, QD
     Route: 048
     Dates: start: 20090101, end: 20120420

REACTIONS (3)
  - BILIARY TRACT DISORDER [None]
  - HEPATIC FUNCTION ABNORMAL [None]
  - DEATH [None]
